FAERS Safety Report 6847538-5 (Version None)
Quarter: 2010Q3

REPORT INFORMATION
  Report Type: 
  Country: None (occurrence: None)
  Receive Date: 20100716
  Receipt Date: 20100517
  Transmission Date: 20110219
  Serious: Yes (Other)
  Sender: FDA-Public Use
  Company Number: US-ASTRAZENECA-2010SE08638

PATIENT
  Age: 681 Month
  Sex: Male

DRUGS (3)
  1. CRESTOR [Suspect]
     Route: 048
  2. LIPITOR [Suspect]
  3. ZETIA [Suspect]

REACTIONS (2)
  - CATHETERISATION CARDIAC [None]
  - VASCULAR GRAFT [None]
